FAERS Safety Report 17534961 (Version 2)
Quarter: 2020Q2

REPORT INFORMATION
  Report Type: Spontaneous
  Country: CA (occurrence: CA)
  Receive Date: 20200312
  Receipt Date: 20200409
  Transmission Date: 20200713
  Serious: No
  Sender: FDA-Public Use
  Company Number: CA-AKCEA THERAPEUTICS-2019IS001580

PATIENT

DRUGS (9)
  1. AMITRIPTYLINE [Concomitant]
     Active Substance: AMITRIPTYLINE
     Indication: HEREDITARY NEUROPATHIC AMYLOIDOSIS
     Dosage: 25 MG, QD
     Route: 048
  2. TEGSEDI [Suspect]
     Active Substance: INOTERSEN SODIUM
     Indication: FAMILIAL AMYLOIDOSIS
     Dosage: 284 MG, QW
     Route: 058
     Dates: start: 20190211
  3. MULTIVITAMIN                       /00097801/ [Concomitant]
     Active Substance: VITAMINS
     Indication: ROUTINE HEALTH MAINTENANCE
     Dosage: 1 DF, UNK
     Route: 048
  4. CODEINE [Concomitant]
     Active Substance: CODEINE
     Indication: DIARRHOEA
     Dosage: 15 MG, QOD (UP TO 3-4 DOSES PER DAY AS NEEDED)
     Route: 048
  5. TEA, GREEN [Concomitant]
     Active Substance: GREEN TEA LEAF
     Indication: FAMILIAL AMYLOIDOSIS
     Dosage: 700 MG, QD
     Route: 048
  6. FUROSEMIDE. [Concomitant]
     Active Substance: FUROSEMIDE
     Indication: OEDEMA
  7. TURMERIC                           /01079602/ [Concomitant]
     Active Substance: HERBALS\TURMERIC
     Indication: FAMILIAL AMYLOIDOSIS
     Dosage: 1000 MG, QD
     Route: 048
  8. BISOPROLOL [Concomitant]
     Active Substance: BISOPROLOL
     Indication: CARDIAC DISORDER
     Dosage: 2.5 MG, QD
     Route: 048
  9. FUROSEMIDE. [Concomitant]
     Active Substance: FUROSEMIDE
     Indication: PULMONARY OEDEMA
     Dosage: 20 MG, QOD (OR DAILY AS NEEDED OR IF EPISODES OF DIFFICULTY BREATHING)
     Route: 048

REACTIONS (8)
  - Injection site pain [Recovered/Resolved]
  - Fatigue [Not Recovered/Not Resolved]
  - Ocular icterus [Recovered/Resolved]
  - Gastric disorder [Not Recovered/Not Resolved]
  - Yellow skin [Recovered/Resolved]
  - Contusion [Not Recovered/Not Resolved]
  - Disease progression [Not Recovered/Not Resolved]
  - Injection site extravasation [Recovered/Resolved]

NARRATIVE: CASE EVENT DATE: 201803
